FAERS Safety Report 4978100-7 (Version None)
Quarter: 2006Q2

REPORT INFORMATION
  Report Type: 
  Country: None (occurrence: None)
  Receive Date: 20060417
  Receipt Date: 20060331
  Transmission Date: 20061013
  Serious: Yes (Death)
  Sender: FDA-Public Use
  Company Number: 8014640

PATIENT
  Age: 52 Year
  Sex: Male

DRUGS (5)
  1. LORTAB [Suspect]
     Dosage: PRN
     Route: 051
  2. REGLAN [Concomitant]
  3. DIGOXIN [Concomitant]
  4. FLAGYL [Concomitant]
  5. LACTULOSE [Concomitant]

REACTIONS (12)
  - ABDOMINAL DISTENSION [None]
  - ABDOMINAL TENDERNESS [None]
  - ANAEMIA [None]
  - HEPATOSPLENOMEGALY [None]
  - HISTIOCYTOSIS HAEMATOPHAGIC [None]
  - HYPOTHERMIA [None]
  - LIVER DISORDER [None]
  - SPLEEN DISORDER [None]
  - T-CELL LYMPHOMA [None]
  - TACHYCARDIA [None]
  - THROMBOCYTOPENIA [None]
  - TOE AMPUTATION [None]
